FAERS Safety Report 11614385 (Version 2)
Quarter: 2015Q4

REPORT INFORMATION
  Report Type: Spontaneous
  Country: NO (occurrence: NO)
  Receive Date: 20151009
  Receipt Date: 20151030
  Transmission Date: 20160304
  Serious: Yes (Hospitalization, Disabling)
  Sender: FDA-Public Use
  Company Number: NO-HOSPIRA-3030612

PATIENT
  Age: 58 Year
  Sex: Female

DRUGS (9)
  1. TARGINIQ ER [Concomitant]
     Active Substance: NALOXONE HYDROCHLORIDE\OXYCODONE HYDROCHLORIDE
     Indication: SMALL CELL LUNG CANCER
     Dosage: 5 MG OXYCODONE/ 2.5 MG NALOXONE
     Route: 048
  2. MEDROL [Concomitant]
     Active Substance: METHYLPREDNISOLONE
     Indication: SMALL CELL LUNG CANCER
     Route: 048
  3. MORPHINE [Concomitant]
     Active Substance: MORPHINE
     Indication: SMALL CELL LUNG CANCER
  4. DUPHALAC [Concomitant]
     Active Substance: LACTULOSE
     Indication: SMALL CELL LUNG CANCER
     Route: 048
  5. ETOPOSIDE. [Suspect]
     Active Substance: ETOPOSIDE
     Indication: SMALL CELL LUNG CANCER
     Route: 041
     Dates: start: 20150827
  6. CARBOPLATIN. [Suspect]
     Active Substance: CARBOPLATIN
     Indication: SMALL CELL LUNG CANCER
     Route: 041
     Dates: start: 20150827
  7. CETIRIZINE [Concomitant]
     Active Substance: CETIRIZINE HYDROCHLORIDE
     Indication: SMALL CELL LUNG CANCER
     Route: 048
  8. SOMAC [Concomitant]
     Active Substance: PANTOPRAZOLE SODIUM
     Indication: SMALL CELL LUNG CANCER
  9. ETOPOSIDE. [Suspect]
     Active Substance: ETOPOSIDE
     Indication: SMALL CELL LUNG CANCER
     Route: 048
     Dates: start: 20150828, end: 20150830

REACTIONS (2)
  - Spinal cord paralysis [Recovering/Resolving]
  - Spinal cord infarction [Recovering/Resolving]

NARRATIVE: CASE EVENT DATE: 20150904
